FAERS Safety Report 6811282-0 (Version None)
Quarter: 2010Q2

REPORT INFORMATION
  Report Type: 
  Country: None (occurrence: None)
  Receive Date: 20100630
  Receipt Date: 20091026
  Transmission Date: 20101027
  Serious: No
  Sender: FDA-Public Use
  Company Number: US-AMGEN-KDL371599

PATIENT
  Sex: Male
  Weight: 75.8 kg

DRUGS (7)
  1. PROCRIT [Suspect]
     Indication: MYELODYSPLASTIC SYNDROME
     Route: 058
  2. NEUPOGEN [Suspect]
     Indication: DRUG USE FOR UNKNOWN INDICATION
     Dates: start: 20070101
  3. LEVOTHYROXINE SODIUM [Concomitant]
  4. TOPROL-XL [Concomitant]
  5. VITAMIN B [Concomitant]
  6. UNSPECIFIED ANTICOAGULANT [Concomitant]
  7. UNSPECIFIED THYROID MEDICATION [Concomitant]

REACTIONS (4)
  - PRURITUS [None]
  - RASH MACULAR [None]
  - SKIN PAPILLOMA [None]
  - THERAPEUTIC RESPONSE DECREASED [None]
